FAERS Safety Report 9486476 (Version 3)
Quarter: 2013Q4

REPORT INFORMATION
  Report Type: Spontaneous
  Country: US (occurrence: US)
  Receive Date: 20130829
  Receipt Date: 20131030
  Transmission Date: 20140711
  Serious: Yes (Other)
  Sender: FDA-Public Use
  Company Number: US-UCBSA-095987

PATIENT
  Age: 44 Year
  Sex: Male
  Weight: 84.8 kg

DRUGS (18)
  1. CIMZIA [Suspect]
     Indication: CROHN^S DISEASE
     Dosage: FIRST INDUCTION DOSE
     Route: 058
     Dates: start: 20130815, end: 20130815
  2. BENADRYL [Suspect]
     Indication: ANAPHYLACTIC REACTION
     Dosage: DOSE : 25 MG
     Route: 048
     Dates: start: 20130815
  3. BENADRYL [Suspect]
     Indication: ANAPHYLACTIC REACTION
     Dosage: DOSE : 25 MG
     Route: 042
     Dates: start: 20130815
  4. SOLUMEDROL [Suspect]
     Indication: ANAPHYLACTIC REACTION
     Dosage: DOSE : 60 MG
     Route: 042
     Dates: start: 20130815
  5. OMEPRAZOLE [Concomitant]
     Dosage: DAILY DOSE: 20 MG
  6. ENTOCORT [Concomitant]
     Indication: CROHN^S DISEASE
     Dosage: STRENGH: 3 MG,  Q AM
     Route: 048
  7. ENTOCORT [Concomitant]
     Indication: DIARRHOEA
     Dosage: STRENGH: 3 MG,  Q AM
     Route: 048
  8. IMURAN [Concomitant]
     Indication: CROHN^S DISEASE
     Dates: end: 201308
  9. IMURAN [Concomitant]
     Indication: CROHN^S DISEASE
     Dosage: DAILY DOSE: 150 MG
     Dates: start: 201308
  10. LIALDA [Concomitant]
     Indication: CROHN^S DISEASE
     Dosage: STRENGH: 1.2 GM
     Route: 048
  11. LANTUS [Concomitant]
     Dosage: DOSE: 15 UNITS
     Route: 058
  12. TWINRIX [Concomitant]
  13. PANCREASE [Concomitant]
  14. OXYBUTYNIN [Concomitant]
     Dosage: DAILY DOSE: 10 MG
  15. NIACIN [Concomitant]
     Dosage: DAILY DOSE: 500 MG
  16. IRON [Concomitant]
  17. PREDNISONE [Concomitant]
     Dosage: DOSE: 25 MG
     Route: 048
     Dates: start: 20130815, end: 201308
  18. PREDNISONE [Concomitant]
     Route: 048
     Dates: start: 20130816

REACTIONS (2)
  - Anaphylactic reaction [Recovering/Resolving]
  - Nervousness [Recovered/Resolved]
